APPROVED DRUG PRODUCT: IBUPROFEN
Active Ingredient: IBUPROFEN
Strength: 800MG
Dosage Form/Route: TABLET;ORAL
Application: A204062 | Product #003
Applicant: SUNSHINE LAKE PHARMA CO LTD
Approved: Sep 10, 2018 | RLD: No | RS: No | Type: DISCN